FAERS Safety Report 5927696-7 (Version None)
Quarter: 2008Q4

REPORT INFORMATION
  Report Type: 
  Country: None (occurrence: None)
  Receive Date: 20081023
  Receipt Date: 20081013
  Transmission Date: 20090506
  Serious: Yes (Hospitalization, Other)
  Sender: FDA-Public Use
  Company Number: US-PURDUE-USA_2002_0003179

PATIENT
  Age: 69 Year
  Sex: Male

DRUGS (6)
  1. OXYCONTIN [Suspect]
     Indication: PAIN
     Dosage: 20 MG, Q12- 24H
     Route: 048
     Dates: start: 20000905, end: 20001116
  2. LORTAB [Suspect]
     Indication: PAIN
     Dosage: UNK TABLET, Q4- 6H PRN
     Route: 048
     Dates: end: 20001116
  3. PEPCID [Concomitant]
     Indication: GASTRIC ULCER
     Dosage: 20 MG, TID
     Route: 048
  4. MULTI-VITAMINS [Concomitant]
     Indication: DRUG USE FOR UNKNOWN INDICATION
     Dosage: 1 TABLET, DAILY
     Route: 048
  5. REMERON [Concomitant]
     Indication: DRUG USE FOR UNKNOWN INDICATION
     Dosage: 15 MG, NOCTE
     Route: 048
  6. ELDERTONIC [Concomitant]
     Indication: DRUG USE FOR UNKNOWN INDICATION
     Dosage: 1 TSP, TID
     Route: 048

REACTIONS (20)
  - AMNESIA [None]
  - BALANCE DISORDER [None]
  - BONE PAIN [None]
  - CHEST PAIN [None]
  - CHRONIC OBSTRUCTIVE PULMONARY DISEASE [None]
  - CONFUSIONAL STATE [None]
  - DECREASED APPETITE [None]
  - DEPRESSION [None]
  - DIZZINESS [None]
  - DRUG ABUSE [None]
  - DRUG DEPENDENCE [None]
  - DYSPNOEA [None]
  - FATIGUE [None]
  - HYPERHIDROSIS [None]
  - INSOMNIA [None]
  - MENTAL DISORDER [None]
  - NAUSEA [None]
  - PYREXIA [None]
  - SUICIDAL IDEATION [None]
  - WEIGHT DECREASED [None]
